FAERS Safety Report 26102641 (Version 1)
Quarter: 2025Q4

REPORT INFORMATION
  Report Type: Spontaneous
  Country: CA (occurrence: CA)
  Receive Date: 20251128
  Receipt Date: 20251128
  Transmission Date: 20260118
  Serious: Yes (Other)
  Sender: PFIZER
  Company Number: CA-PFIZER INC-202500232713

PATIENT
  Age: 55 Year
  Sex: Female

DRUGS (1)
  1. RUXIENCE [Suspect]
     Active Substance: RITUXIMAB-PVVR
     Indication: Encephalitis
     Dosage: 1000 MG,DAY 1 AND DAY 15
     Route: 042
     Dates: start: 20250613, end: 20250627

REACTIONS (2)
  - Partial seizures [Unknown]
  - Cataract [Unknown]
